FAERS Safety Report 9561527 (Version 1)
Quarter: 2013Q3

REPORT INFORMATION
  Report Type: Spontaneous
  Country: US (occurrence: US)
  Receive Date: 20130927
  Receipt Date: 20130927
  Transmission Date: 20140515
  Serious: No
  Sender: FDA-Public Use
  Company Number: US-BIOGENIDEC-2013BI060860

PATIENT
  Age: 44 Year
  Sex: Female

DRUGS (9)
  1. TECFIDERA [Suspect]
     Indication: MULTIPLE SCLEROSIS
     Route: 048
     Dates: start: 20130612, end: 20130618
  2. TECFIDERA [Suspect]
     Indication: MULTIPLE SCLEROSIS
     Route: 048
     Dates: start: 20130619, end: 20130705
  3. TECFIDERA [Suspect]
     Indication: MULTIPLE SCLEROSIS
     Route: 048
     Dates: start: 20130705
  4. LEVOTHYROXINE [Concomitant]
  5. IBUPROFEN M [Concomitant]
  6. SIMVASTATIN [Concomitant]
  7. BACLOFEN [Concomitant]
  8. ADVIL ALLERG TAB SINUS [Concomitant]
  9. LEVOTHROID [Concomitant]

REACTIONS (9)
  - Swelling face [Recovered/Resolved]
  - Gastrooesophageal reflux disease [Recovered/Resolved]
  - Skin warm [Recovered/Resolved]
  - VIIth nerve paralysis [Recovered/Resolved]
  - Flushing [Recovered/Resolved]
  - Diarrhoea [Recovered/Resolved]
  - Vomiting [Not Recovered/Not Resolved]
  - Abdominal pain upper [Not Recovered/Not Resolved]
  - Medication error [Not Recovered/Not Resolved]
